FAERS Safety Report 6141217-8 (Version None)
Quarter: 2009Q2

REPORT INFORMATION
  Report Type: 
  Country: None (occurrence: None)
  Receive Date: 20090402
  Receipt Date: 20090323
  Transmission Date: 20091009
  Serious: Yes (Other)
  Sender: FDA-Public Use
  Company Number: NO-JNJFOC-20090306462

PATIENT
  Sex: Male

DRUGS (4)
  1. REMICADE [Suspect]
     Dosage: 4TH DOSE
     Route: 042
  2. REMICADE [Suspect]
     Dosage: 3RD DOSE
     Route: 042
  3. REMICADE [Suspect]
     Dosage: 2ND DOSE
     Route: 042
  4. REMICADE [Suspect]
     Indication: RHEUMATOID ARTHRITIS
     Dosage: 1ST DOSE
     Route: 042

REACTIONS (2)
  - FRACTURE [None]
  - LUNG ADENOCARCINOMA [None]
